FAERS Safety Report 4485320-7 (Version None)
Quarter: 2004Q4

REPORT INFORMATION
  Report Type: 
  Country: None (occurrence: None)
  Receive Date: 20041021
  Receipt Date: 20041013
  Transmission Date: 20050328
  Serious: Yes (Death)
  Sender: FDA-Public Use
  Company Number: 2004-10-0889

PATIENT
  Age: 47 Year
  Sex: Male

DRUGS (6)
  1. PEG-INTRON [Suspect]
     Indication: HEPATITIS C
     Dosage: SUBCUTANEOUS
     Route: 058
     Dates: start: 20040806
  2. REBETOL [Suspect]
     Indication: HEPATITIS C
     Dates: start: 20040806
  3. ASPIRIN [Concomitant]
  4. COREG [Concomitant]
  5. DIGOXIN [Concomitant]
  6. LISINOPRIL [Concomitant]

REACTIONS (1)
  - DEATH [None]
